FAERS Safety Report 22051273 (Version 2)
Quarter: 2023Q2

REPORT INFORMATION
  Report Type: Spontaneous
  Country: IT (occurrence: IT)
  Receive Date: 20230301
  Receipt Date: 20230405
  Transmission Date: 20230722
  Serious: Yes (Other)
  Sender: FDA-Public Use
  Company Number: None

PATIENT
  Age: 70 Year
  Sex: Male

DRUGS (1)
  1. GLYXAMBI [Suspect]
     Active Substance: EMPAGLIFLOZIN\LINAGLIPTIN
     Indication: Diabetes mellitus
     Dosage: DOSAGE: 10/5 MG 1 CP (AS REPORTED) / DAY
     Route: 048
     Dates: start: 2019, end: 2023

REACTIONS (4)
  - Balanoposthitis [Recovered/Resolved]
  - Skin fissures [Recovered/Resolved]
  - Genital tract inflammation [Recovered/Resolved]
  - Pruritus [Recovered/Resolved]

NARRATIVE: CASE EVENT DATE: 20221227
